FAERS Safety Report 25686437 (Version 1)
Quarter: 2025Q3

REPORT INFORMATION
  Report Type: Spontaneous
  Country: US (occurrence: US)
  Receive Date: 20250815
  Receipt Date: 20250815
  Transmission Date: 20251021
  Serious: No
  Sender: BOEHRINGER INGELHEIM
  Company Number: US-Komodo Health-a23aa000009XQszAAG

PATIENT
  Age: 64 Year
  Sex: Female

DRUGS (1)
  1. PRADAXA [Suspect]
     Active Substance: DABIGATRAN ETEXILATE MESYLATE
     Indication: Deep vein thrombosis
     Dates: start: 20250724

REACTIONS (2)
  - Product prescribing issue [Unknown]
  - Dysphagia [Unknown]
